FAERS Safety Report 12477823 (Version 1)
Quarter: 2016Q2

REPORT INFORMATION
  Report Type: Spontaneous
  Country: FI (occurrence: FI)
  Receive Date: 20160617
  Receipt Date: 20160617
  Transmission Date: 20160815
  Serious: Yes (Hospitalization, Other)
  Sender: FDA-Public Use
  Company Number: FI-MYLANLABS-2016M1024397

PATIENT

DRUGS (1)
  1. ZOLMITRIPTAN. [Suspect]
     Active Substance: ZOLMITRIPTAN
     Indication: MIGRAINE
     Dosage: 5-20 MG DAILY

REACTIONS (3)
  - Arteriospasm coronary [Recovered/Resolved]
  - Chest pain [Recovered/Resolved]
  - Cardiac failure [Recovered/Resolved]
